FAERS Safety Report 8310778-2 (Version None)
Quarter: 2012Q2

REPORT INFORMATION
  Report Type: 
  Country: None (occurrence: None)
  Receive Date: 20120425
  Receipt Date: 20120419
  Transmission Date: 20120825
  Serious: Yes (Life-Threatening, Hospitalization, Other)
  Sender: FDA-Public Use
  Company Number: DE-TYCO HEALTHCARE/MALLINCKRODT-T200901000

PATIENT

DRUGS (1)
  1. SODIUM IODIDE I 131 [Suspect]
     Indication: RADIOISOTOPE SCAN
     Dosage: DRUG EXPOSURE VIA MOTHER
     Route: 064
     Dates: start: 19970501, end: 19970501

REACTIONS (9)
  - ASTROCYTOMA [None]
  - ACUTE RESPIRATORY DISTRESS SYNDROME [None]
  - APALLIC SYNDROME [None]
  - LUNG INFECTION PSEUDOMONAL [None]
  - HYDROCEPHALUS [None]
  - RENAL FAILURE ACUTE [None]
  - DECUBITUS ULCER [None]
  - CEREBELLAR TUMOUR [None]
  - BRAIN STEM SYNDROME [None]
